FAERS Safety Report 9014047 (Version 3)
Quarter: 2014Q1

REPORT INFORMATION
  Report Type: Spontaneous
  Country: US (occurrence: US)
  Receive Date: 20130115
  Receipt Date: 20140204
  Transmission Date: 20141002
  Serious: Yes (Hospitalization, Other)
  Sender: FDA-Public Use
  Company Number: US-009507513-1301USA005242

PATIENT
  Sex: Female
  Weight: 108.84 kg

DRUGS (1)
  1. NUVARING [Suspect]
     Indication: CONTRACEPTION
     Dosage: UNK
     Route: 067
     Dates: start: 201205, end: 201208

REACTIONS (10)
  - Pulmonary embolism [Unknown]
  - Coagulopathy [Unknown]
  - Malaise [Unknown]
  - Vomiting [Unknown]
  - Head injury [Unknown]
  - Fall [Unknown]
  - Headache [Unknown]
  - Pain in extremity [Unknown]
  - Dyspepsia [Unknown]
  - Epistaxis [Not Recovered/Not Resolved]
